FAERS Safety Report 4398671-1 (Version None)
Quarter: 2004Q3

REPORT INFORMATION
  Report Type: 
  Country: None (occurrence: None)
  Receive Date: 20040712
  Receipt Date: 20040628
  Transmission Date: 20050211
  Serious: Yes (Death)
  Sender: FDA-Public Use
  Company Number: 066-20785-04060706

PATIENT

DRUGS (3)
  1. THALIDOMIDE (THALIDOMIDE) [Suspect]
     Indication: MULTIPLE MYELOMA
     Dosage: 400 MG, QHS, DAYS 1-5 AN 14-18, ORAL
     Route: 048
  2. CYCLOPHOSPHAMIDE [Suspect]
     Dosage: 150 MG/M2, Q12H, BEFORE MEALS ON DAYS 1-5, ORAL
     Route: 048
  3. DEXAMETHASONE [Suspect]
     Dosage: 20 MG/M2, QD IN MORNING AFTER MEAL ON DAYS 1-5, ORAL
     Route: 048

REACTIONS (2)
  - MYOCARDIAL INFARCTION [None]
  - VENTRICULAR TACHYCARDIA [None]
